FAERS Safety Report 21250049 (Version 2)
Quarter: 2022Q3

REPORT INFORMATION
  Report Type: Spontaneous
  Country: PT (occurrence: PT)
  Receive Date: 20220824
  Receipt Date: 20220902
  Transmission Date: 20221027
  Serious: Yes (Disabling)
  Sender: FDA-Public Use
  Company Number: None

PATIENT
  Sex: Female
  Weight: 70 kg

DRUGS (4)
  1. PYLERA [Suspect]
     Active Substance: BISMUTH SUBCITRATE POTASSIUM\METRONIDAZOLE\TETRACYCLINE HYDROCHLORIDE
     Indication: Bacterial disease carrier
     Dosage: 12 TABLETS DAILY (MEDICAL PRESCRIPTION: 3 CAPSULES 4 TIMES A DAY, AFTER BREAKFAST, LUNCH, DINNER AND
     Route: 048
     Dates: start: 20220720, end: 20220730
  2. PANTOPRAZOLE [Concomitant]
     Active Substance: PANTOPRAZOLE
     Indication: Bacterial disease carrier
     Dosage: 1 TABLET AT BREAKFAST + 1 TABLET AT DINNER. TAKEN DURING TREATMENT WITH PYLERA
     Route: 048
     Dates: start: 20220720, end: 20220730
  3. FLUTAMIDA [Concomitant]
     Dosage: PATIENT TAKES ^A MANIPULATED TABLET AND THE DOSAGE IS 125 MG DAILY^
     Route: 048
  4. LEVOTHYROXINE SODIUM [Concomitant]
     Active Substance: LEVOTHYROXINE SODIUM
     Dosage: 0.088 MG
     Route: 048

REACTIONS (3)
  - Migraine [Recovered/Resolved]
  - Malaise [Recovered/Resolved]
  - Vomiting [Recovered/Resolved]

NARRATIVE: CASE EVENT DATE: 20220722
